FAERS Safety Report 9068227 (Version 1)
Quarter: 2013Q1

REPORT INFORMATION
  Report Type: Spontaneous
  Country: JP (occurrence: JP)
  Receive Date: 20130128
  Receipt Date: 20130128
  Transmission Date: 20140127
  Serious: Yes (Other)
  Sender: FDA-Public Use
  Company Number: JP-ASTRAZENECA-2013SE04136

PATIENT
  Age: 84 Year
  Sex: Male

DRUGS (1)
  1. SEROQUEL [Suspect]
     Indication: AGITATION
     Route: 048
     Dates: start: 201210, end: 201301

REACTIONS (4)
  - Blood creatine phosphokinase increased [Recovering/Resolving]
  - Rhabdomyolysis [Recovering/Resolving]
  - Convulsion [Recovering/Resolving]
  - Off label use [Unknown]
